FAERS Safety Report 8600758-1 (Version None)
Quarter: 2012Q3

REPORT INFORMATION
  Report Type: 
  Country: None (occurrence: None)
  Receive Date: 20120806
  Receipt Date: 20120730
  Transmission Date: 20120928
  Serious: Yes (Other)
  Sender: FDA-Public Use
  Company Number: GER/UKI/12/0024368

PATIENT
  Age: 25 Year
  Sex: Female
  Weight: 90 kg

DRUGS (3)
  1. PALIPERIDONE [Suspect]
     Indication: PRODUCT USED FOR UNKNOWN INDICATION
     Dosage: 150 MG, 1 IN 1 M, INTRAMUSCULAR
  2. ABILIFY [Suspect]
     Indication: PRODUCT USED FOR UNKNOWN INDICATION
     Dosage: 10 MG, ORAL
     Route: 048
     Dates: start: 20120328
  3. RISPERIDONE [Suspect]
     Indication: PRODUCT USED FOR UNKNOWN INDICATION

REACTIONS (6)
  - MENSTRUATION IRREGULAR [None]
  - PSYCHOTIC DISORDER [None]
  - MENTAL IMPAIRMENT [None]
  - DEPRESSION [None]
  - HYPERPROLACTINAEMIA [None]
  - BODY MASS INDEX INCREASED [None]
